FAERS Safety Report 5223674-4 (Version None)
Quarter: 2007Q1

REPORT INFORMATION
  Report Type: 
  Country: None (occurrence: None)
  Receive Date: 20070125
  Receipt Date: 20070105
  Transmission Date: 20070707
  Serious: No
  Sender: FDA-Public Use
  Company Number: PHBS2007ES00517

PATIENT
  Sex: Male

DRUGS (1)
  1. LIORESAL [Suspect]
     Dosage: 10MG/5 ML INTRATHECAL
     Route: 037

REACTIONS (2)
  - CONVULSION [None]
  - HYPERPROTEINAEMIA [None]
